FAERS Safety Report 9251805 (Version 1)
Quarter: 2013Q1

REPORT INFORMATION
  Report Type: Spontaneous
  Country: US (occurrence: None)
  Receive Date: 20130305
  Receipt Date: 20130305
  Transmission Date: 20140127
  Serious: Yes (Other)
  Sender: FDA-Public Use
  Company Number: 163-21880-12081746

PATIENT
  Age: 51 Year
  Sex: Male
  Weight: 108.86 kg

DRUGS (7)
  1. REVLIMID (LENALIDOMIDE) (CAPSULES) [Suspect]
     Indication: PLASMA CELL MYELOMA
     Dosage: 25 MG, 1 IN 1 D, PO
     Route: 048
     Dates: start: 20080724
  2. STEROIDS [Suspect]
  3. DULERA [Suspect]
  4. ASA (ACETYLSALICYLIC ACID) [Suspect]
  5. GEMFIBROZIL [Suspect]
  6. LISINOPRIL (LISINOPRIL) [Suspect]
  7. TRICOR [Suspect]

REACTIONS (3)
  - Bronchitis [None]
  - Poor quality sleep [None]
  - Dyspnoea [None]
